FAERS Safety Report 10387201 (Version 1)
Quarter: 2014Q3

REPORT INFORMATION
  Report Type: Spontaneous
  Country: GB (occurrence: GB)
  Receive Date: 20140815
  Receipt Date: 20140815
  Transmission Date: 20150326
  Serious: Yes (Other)
  Sender: FDA-Public Use
  Company Number: GB-WATSON-2014-17450

PATIENT
  Age: 62 Year
  Sex: Male
  Weight: 74 kg

DRUGS (1)
  1. CITALOPRAM [Suspect]
     Active Substance: CITALOPRAM HYDROBROMIDE
     Indication: PANIC ATTACK
     Dosage: 20 MG, DAILY
     Route: 048
     Dates: start: 201109, end: 201407

REACTIONS (4)
  - Ageusia [Recovering/Resolving]
  - Ejaculation delayed [Recovering/Resolving]
  - Genital hypoaesthesia [Recovering/Resolving]
  - Night sweats [Recovering/Resolving]
